FAERS Safety Report 10050357 (Version 5)
Quarter: 2015Q2

REPORT INFORMATION
  Report Type: Report from Study
  Country: JP (occurrence: JP)
  Receive Date: 20140401
  Receipt Date: 20150504
  Transmission Date: 20150821
  Serious: Yes (Hospitalization)
  Sender: FDA-Public Use
  Company Number: JP-AMGEN-JPNCT2014022918

PATIENT
  Age: 69 Year
  Sex: Female
  Weight: 50 kg

DRUGS (14)
  1. FASLODEX [Concomitant]
     Active Substance: FULVESTRANT
     Dosage: UNK
     Route: 065
     Dates: start: 20130131, end: 20140109
  2. HERCEPTIN [Concomitant]
     Active Substance: TRASTUZUMAB
     Dosage: 392 MG, QD
     Route: 042
     Dates: start: 20140225, end: 20140717
  3. DENOSUMAB [Suspect]
     Active Substance: DENOSUMAB
     Indication: METASTASES TO BONE
     Dosage: 120 MG, UNK
     Route: 058
     Dates: start: 20130228, end: 20140319
  4. SAWACILLIN [Concomitant]
     Active Substance: AMOXICILLIN
     Dosage: UNK
     Dates: start: 20111213, end: 20131119
  5. CLARITH [Concomitant]
     Active Substance: CLARITHROMYCIN
     Dosage: UNK
     Dates: start: 20111213, end: 20131119
  6. ZOMETA [Concomitant]
     Active Substance: ZOLEDRONIC ACID
     Dosage: 4 MG, QD
     Route: 042
     Dates: start: 20090818, end: 20120327
  7. FERIDEX                            /00023502/ [Concomitant]
     Dosage: UNK
     Route: 065
     Dates: start: 20130131, end: 20140109
  8. CLINDAMYCIN                        /00166003/ [Concomitant]
     Dosage: 600 MG, UNK
     Dates: start: 20131205, end: 20131214
  9. FEMARA [Concomitant]
     Active Substance: LETROZOLE
     Dosage: UNK
     Route: 065
     Dates: start: 20090818, end: 20130130
  10. FLOMOX                             /01418603/ [Concomitant]
     Dosage: UNK
     Dates: start: 20111212, end: 20131119
  11. DOCETAXEL. [Concomitant]
     Active Substance: DOCETAXEL
     Dosage: UNK
     Route: 065
     Dates: start: 20140717, end: 20140717
  12. ALFAROL [Concomitant]
     Active Substance: ALFACALCIDOL
     Dosage: 0.25 MUG, QD
     Route: 048
     Dates: start: 20130228, end: 20140206
  13. CALCIUM LACTATE [Concomitant]
     Active Substance: CALCIUM LACTATE
     Dosage: 4 G, QD
     Route: 048
     Dates: start: 20130228, end: 20140206
  14. PENTCILLIN [Concomitant]
     Active Substance: PIPERACILLIN SODIUM
     Dosage: 2 G, UNK
     Dates: start: 20131205, end: 20131214

REACTIONS (5)
  - Osteomyelitis [Not Recovered/Not Resolved]
  - Cellulitis [Not Recovered/Not Resolved]
  - Hypocalcaemia [Recovering/Resolving]
  - Hypoproteinaemia [Not Recovered/Not Resolved]
  - Hypoalbuminaemia [Not Recovered/Not Resolved]

NARRATIVE: CASE EVENT DATE: 20130910
